FAERS Safety Report 9348412 (Version 1)
Quarter: 2013Q2

REPORT INFORMATION
  Report Type: Spontaneous
  Country: US (occurrence: None)
  Receive Date: 20130613
  Receipt Date: 20130613
  Transmission Date: 20140414
  Serious: Yes (Hospitalization)
  Sender: FDA-Public Use
  Company Number: None

PATIENT
  Age: 32 Year
  Sex: Female

DRUGS (1)
  1. METFORMIN [Suspect]
     Indication: BLOOD GLUCOSE INCREASED
     Dosage: 2 TABS
     Route: 048
     Dates: start: 20130507

REACTIONS (5)
  - Nausea [None]
  - Vomiting [None]
  - Abdominal pain upper [None]
  - Oropharyngeal pain [None]
  - Motion sickness [None]
